FAERS Safety Report 24172410 (Version 1)
Quarter: 2024Q3

REPORT INFORMATION
  Report Type: Spontaneous
  Country: US (occurrence: US)
  Receive Date: 20240805
  Receipt Date: 20240805
  Transmission Date: 20241016
  Serious: No
  Sender: GLAXOSMITHKLINE
  Company Number: US-GLAXOSMITHKLINE-US2024AMR096096

PATIENT

DRUGS (1)
  1. ZEJULA [Suspect]
     Active Substance: NIRAPARIB
     Indication: Lung carcinoma cell type unspecified stage 0
     Dosage: UNK

REACTIONS (1)
  - Off label use [Unknown]
